FAERS Safety Report 20117368 (Version 1)
Quarter: 2021Q4

REPORT INFORMATION
  Report Type: Spontaneous
  Country: US (occurrence: US)
  Receive Date: 20211126
  Receipt Date: 20211126
  Transmission Date: 20220304
  Serious: Yes (Other)
  Sender: FDA-Public Use
  Company Number: US-GLAXOSMITHKLINE- US2021GSK243583

PATIENT
  Sex: Female

DRUGS (7)
  1. ZANTAC [Suspect]
     Active Substance: RANITIDINE HYDROCHLORIDE
     Indication: Oesophageal stenosis
     Dosage: UNK, 2 TABLETS PER DAY
     Route: 065
     Dates: start: 200901, end: 201909
  2. ZANTAC [Suspect]
     Active Substance: RANITIDINE HYDROCHLORIDE
     Indication: Oesophageal stenosis
     Dosage: UNK, 2 TABLETS PER DAY
     Route: 065
     Dates: start: 200901, end: 201909
  3. RANITIDINE HYDROCHLORIDE [Suspect]
     Active Substance: RANITIDINE HYDROCHLORIDE
     Indication: Oesophageal stenosis
     Dosage: UNK, 2 TABLETS PER DAY
     Route: 065
     Dates: start: 200901, end: 201909
  4. RANITIDINE HYDROCHLORIDE [Suspect]
     Active Substance: RANITIDINE HYDROCHLORIDE
     Indication: Oesophageal stenosis
     Dosage: UNK, 2 TABLETS PER DAY
     Route: 065
     Dates: start: 200901, end: 201909
  5. ZANTAC [Suspect]
     Active Substance: RANITIDINE HYDROCHLORIDE
     Indication: Oesophageal stenosis
     Dosage: UNK, 2 TABLETS PER DAY
     Route: 065
     Dates: start: 200901, end: 201909
  6. RANITIDINE [Suspect]
     Active Substance: RANITIDINE
     Indication: Oesophageal stenosis
     Dosage: UNK, 2 TABLETS PER DAY
     Route: 065
     Dates: start: 200901, end: 201909
  7. RANITIDINE HYDROCHLORIDE [Suspect]
     Active Substance: RANITIDINE HYDROCHLORIDE
     Indication: Oesophageal stenosis
     Dosage: UNK, 2 TABLETS PER DAY
     Route: 065
     Dates: start: 200901, end: 201909

REACTIONS (1)
  - Colorectal cancer [Unknown]
